FAERS Safety Report 23246671 (Version 1)
Quarter: 2023Q4

REPORT INFORMATION
  Report Type: Spontaneous
  Country: US (occurrence: US)
  Receive Date: 20231130
  Receipt Date: 20231130
  Transmission Date: 20240110
  Serious: No
  Sender: FDA-Public Use
  Company Number: US-ALVOGEN-2023092340

PATIENT
  Sex: Female

DRUGS (3)
  1. TERIPARATIDE [Suspect]
     Active Substance: TERIPARATIDE
     Indication: Product used for unknown indication
     Dosage: EXPIRATION DATE: SEP-2024
  2. TERIPARATIDE [Suspect]
     Active Substance: TERIPARATIDE
     Indication: Product used for unknown indication
     Dosage: PATIENT ALREADY THREW AWAY THE PEN AND HAD ONLY 2 DOSES LEFT.
  3. TERIPARATIDE [Suspect]
     Active Substance: TERIPARATIDE
     Indication: Product used for unknown indication
     Dosage: USING TERIPARATIDE FROM A YEAR AND HALF WITH NO ISSUES.

REACTIONS (4)
  - Device malfunction [Unknown]
  - Device operational issue [Unknown]
  - Product storage error [Unknown]
  - Wrong technique in product usage process [Unknown]
